FAERS Safety Report 6688857-5 (Version None)
Quarter: 2010Q2

REPORT INFORMATION
  Report Type: 
  Country: None (occurrence: None)
  Receive Date: 20100420
  Receipt Date: 20100406
  Transmission Date: 20101027
  Serious: Yes (Other)
  Sender: FDA-Public Use
  Company Number: ES-ELI_LILLY_AND_COMPANY-ES201004001471

PATIENT
  Sex: Female

DRUGS (5)
  1. FORTEO [Suspect]
     Indication: OSTEOPOROSIS
     Dosage: 20 UG, DAILY (1/D)
     Route: 058
     Dates: start: 20100101
  2. KALPRESS [Concomitant]
     Indication: HYPERTENSION
     Dosage: 40 MG, 2/D
     Route: 048
  3. IDAPTAN [Concomitant]
     Indication: VERTIGO
     Dosage: UNK, DAILY (1/D)
     Route: 048
  4. GELOCATIL [Concomitant]
     Indication: PAIN
     Dosage: UNK, AS NEEDED
     Route: 048
  5. IDEOS                              /00944201/ [Concomitant]
     Indication: MINERAL SUPPLEMENTATION
     Dosage: UNK, DAILY (1/D)
     Route: 048

REACTIONS (2)
  - BREAST PAIN [None]
  - BREAST SWELLING [None]
